FAERS Safety Report 6410687-X (Version None)
Quarter: 2009Q4

REPORT INFORMATION
  Report Type: 
  Country: None (occurrence: None)
  Receive Date: 20091022
  Receipt Date: 20091012
  Transmission Date: 20100525
  Serious: Yes (Other)
  Sender: FDA-Public Use
  Company Number: MX-ASTRAZENECA-2009SE18471

PATIENT
  Age: 10992 Day
  Sex: Male
  Weight: 80 kg

DRUGS (2)
  1. XYLODERM [Suspect]
     Indication: DRY SKIN
     Dosage: AS REQUIRED
     Route: 061
     Dates: start: 20090930, end: 20091002
  2. XYLODERM [Suspect]
     Indication: PRURITUS
     Dosage: AS REQUIRED
     Route: 061
     Dates: start: 20090930, end: 20091002

REACTIONS (3)
  - CATARACT [None]
  - HEADACHE [None]
  - VISUAL ACUITY REDUCED [None]
